FAERS Safety Report 18462513 (Version 3)
Quarter: 2021Q1

REPORT INFORMATION
  Report Type: Report from Study
  Country: CZ (occurrence: CZ)
  Receive Date: 20201104
  Receipt Date: 20210226
  Transmission Date: 20210419
  Serious: Yes (Hospitalization)
  Sender: FDA-Public Use
  Company Number: CZ-CELGENEUS-CZE-20201100354

PATIENT
  Age: 72 Year
  Sex: Female
  Weight: 83 kg

DRUGS (23)
  1. OLICLINOMEL [Concomitant]
     Active Substance: AMINO ACIDS\DEXTROSE\ELECTROLYTES NOS\SOYBEAN OIL
     Indication: COLITIS ULCERATIVE
     Dosage: 1000 MILLILITER
     Route: 051
     Dates: start: 20200822, end: 20200910
  2. EXACYL [Concomitant]
     Active Substance: TRANEXAMIC ACID
     Indication: COLITIS ULCERATIVE
     Dosage: 1 AMPOULES
     Route: 041
     Dates: start: 20200822, end: 20200910
  3. NOVALGIN [Concomitant]
     Indication: ABDOMINAL PAIN
     Route: 048
     Dates: start: 20200902, end: 20200918
  4. PENTASA [Concomitant]
     Active Substance: MESALAMINE
     Indication: COLITIS ULCERATIVE
     Dosage: 8 MILLIGRAM
     Route: 048
     Dates: start: 20200901
  5. OXAZEPAM. [Concomitant]
     Active Substance: OXAZEPAM
     Indication: PROPHYLAXIS
     Route: 048
     Dates: start: 20200901, end: 20200918
  6. TRAMAL [Concomitant]
     Active Substance: TRAMADOL
     Indication: PREMEDICATION
     Route: 040
     Dates: start: 20200904, end: 20200904
  7. NOLPAZA [Concomitant]
     Active Substance: PANTOPRAZOLE SODIUM
     Indication: COLITIS ULCERATIVE
     Dosage: 80 MILLIGRAM
     Route: 048
     Dates: start: 20200901
  8. TORECAN [Concomitant]
     Active Substance: THIETHYLPERAZINE MALATE
     Dosage: 2400 MILLIGRAM
     Route: 048
     Dates: start: 20200901
  9. LUSPATERCEPT. [Suspect]
     Active Substance: LUSPATERCEPT
     Indication: ANAEMIA OF MALIGNANT DISEASE
     Dosage: 83 MILLIGRAM
     Route: 058
     Dates: start: 20200817, end: 20200817
  10. NEUROL [Concomitant]
     Indication: PROPHYLAXIS
     Route: 048
     Dates: start: 20200913, end: 20200918
  11. DORMICUM [Concomitant]
     Indication: PREMEDICATION
     Route: 040
     Dates: start: 20200904, end: 20200904
  12. GLYCLADA [Concomitant]
     Active Substance: GLICLAZIDE
     Indication: DIABETES MELLITUS
     Dosage: 60 MILLIGRAM
     Route: 048
     Dates: start: 20200901
  13. TORECAN [Concomitant]
     Active Substance: THIETHYLPERAZINE MALATE
     Indication: VOMITING
     Dosage: 0.6V MG
     Route: 041
     Dates: start: 20200913, end: 20200918
  14. CLEXANE [Concomitant]
     Active Substance: ENOXAPARIN SODIUM
     Indication: THROMBOSIS PROPHYLAXIS
     Route: 058
     Dates: start: 20200822, end: 20200822
  15. ASACOL [Concomitant]
     Active Substance: MESALAMINE
     Dosage: 2400 MILLIGRAM
     Route: 048
     Dates: start: 20200901
  16. CERNEVIT [Concomitant]
     Active Substance: VITAMINS
     Indication: COLITIS ULCERATIVE
     Dosage: 1 AMPOULES
     Route: 041
     Dates: start: 20200822, end: 20200910
  17. EFLORAN [Concomitant]
     Indication: COLITIS ULCERATIVE
     Dosage: 1.5 GRAM
     Route: 041
     Dates: start: 20200822, end: 20200901
  18. VASOCARDIN [Concomitant]
     Active Substance: METOPROLOL
     Indication: HYPERTENSION
     Dosage: 200 MILLIGRAM
     Route: 048
     Dates: start: 20200902, end: 20200918
  19. METRONIDAZOLE. [Concomitant]
     Active Substance: METRONIDAZOLE
     Indication: COLITIS ULCERATIVE
     Dosage: 2000 MILLIGRAM
     Route: 041
     Dates: start: 20200901, end: 20200910
  20. DICYNONE [Concomitant]
     Active Substance: ETHAMSYLATE
     Indication: GASTROINTESTINAL HAEMORRHAGE
     Dosage: 1 AMPULE
     Route: 040
     Dates: start: 20200822, end: 20200910
  21. TRAMAL [Concomitant]
     Active Substance: TRAMADOL
     Route: 040
     Dates: start: 20200913, end: 20200918
  22. VASOCARDIN [Concomitant]
     Active Substance: METOPROLOL
     Dosage: 2400 MILLIGRAM
     Route: 048
     Dates: start: 20200901
  23. ASACOL [Concomitant]
     Active Substance: MESALAMINE
     Indication: COLITIS ULCERATIVE
     Dosage: 2.5?25 E9 CFU
     Route: 048
     Dates: start: 20200901

REACTIONS (1)
  - Hypotension [Recovered/Resolved]

NARRATIVE: CASE EVENT DATE: 20200913
